FAERS Safety Report 7384959-9 (Version None)
Quarter: 2011Q1

REPORT INFORMATION
  Report Type: 
  Country: None (occurrence: None)
  Receive Date: 20110330
  Receipt Date: 20110321
  Transmission Date: 20110831
  Serious: Yes (Hospitalization)
  Sender: FDA-Public Use
  Company Number: FR-ASTRAZENECA-2011SE16604

PATIENT
  Age: 85 Year
  Sex: Female

DRUGS (2)
  1. ACETAMINOPHEN AND TRAMADOL HCL [Suspect]
     Route: 048
     Dates: start: 20101113, end: 20101218
  2. MOPRAL [Suspect]
     Route: 048
     Dates: start: 20101128, end: 20101219

REACTIONS (1)
  - CYTOLYTIC HEPATITIS [None]
